FAERS Safety Report 14157085 (Version 1)
Quarter: 2017Q4

REPORT INFORMATION
  Report Type: Spontaneous
  Country: US (occurrence: None)
  Receive Date: 20171103
  Receipt Date: 20171103
  Transmission Date: 20180321
  Serious: Yes (Hospitalization)
  Sender: FDA-Public Use
  Company Number: None

PATIENT
  Age: 57 Year
  Sex: Female

DRUGS (1)
  1. SUTENT [Suspect]
     Active Substance: SUNITINIB MALATE
     Indication: RENAL CELL CARCINOMA
     Dosage: 50MG QD PO (4 WKS ON, 2 WKS OFF)
     Route: 048
     Dates: start: 20171021, end: 20171027

REACTIONS (2)
  - Diarrhoea [None]
  - Pancreatitis [None]

NARRATIVE: CASE EVENT DATE: 20171025
